FAERS Safety Report 4632529-5 (Version None)
Quarter: 2005Q2

REPORT INFORMATION
  Report Type: 
  Country: None (occurrence: None)
  Receive Date: 20050408
  Receipt Date: 20050329
  Transmission Date: 20051028
  Serious: Yes (Hospitalization)
  Sender: FDA-Public Use
  Company Number: 05-03-0504

PATIENT
  Age: 55 Year
  Sex: Female

DRUGS (1)
  1. METHOCARBAMOL/ASPIRIN [Suspect]
     Dosage: 300 MG

REACTIONS (8)
  - ARTERIOSPASM CORONARY [None]
  - ATRIOVENTRICULAR BLOCK COMPLETE [None]
  - CHEST PAIN [None]
  - DYSPNOEA [None]
  - ELECTROCARDIOGRAM ST SEGMENT ELEVATION [None]
  - MYOCARDIAL INFARCTION [None]
  - URTICARIA GENERALISED [None]
  - VENTRICULAR HYPOKINESIA [None]
